FAERS Safety Report 7652272-8 (Version None)
Quarter: 2011Q3

REPORT INFORMATION
  Report Type: 
  Country: None (occurrence: None)
  Receive Date: 20110803
  Receipt Date: 20110729
  Transmission Date: 20111222
  Serious: Yes (Hospitalization)
  Sender: FDA-Public Use
  Company Number: RO-TEVA-293753ISR

PATIENT
  Age: 67 Year
  Sex: Male

DRUGS (3)
  1. MELOXICAM [Suspect]
     Indication: ARTHRITIS
  2. SIMVASTATIN [Suspect]
     Indication: HYPERCHOLESTEROLAEMIA
  3. ENALAPRILUM (ENALAPRIL) [Suspect]
     Indication: HYPERTENSION

REACTIONS (6)
  - RASH PUSTULAR [None]
  - MALAISE [None]
  - ACUTE GENERALISED EXANTHEMATOUS PUSTULOSIS [None]
  - PRURITUS [None]
  - RASH ERYTHEMATOUS [None]
  - PYREXIA [None]
